FAERS Safety Report 9294065 (Version 1)
Quarter: 2013Q1

REPORT INFORMATION
  Report Type: Spontaneous
  Country: US (occurrence: None)
  Receive Date: 20121218
  Receipt Date: 20121218
  Transmission Date: 20140127
  Serious: Yes (Other)
  Sender: FDA-Public Use
  Company Number: PHEH2012US015263

PATIENT
  Sex: 0

DRUGS (1)
  1. ZOMETA [Suspect]
     Indication: PLASMA CELL MYELOMA
     Dosage: UNK, UNK, UNK

REACTIONS (1)
  - Renal impairment [None]
